FAERS Safety Report 6029506-9 (Version None)
Quarter: 2009Q1

REPORT INFORMATION
  Report Type: 
  Country: None (occurrence: None)
  Receive Date: 20090106
  Receipt Date: 20081218
  Transmission Date: 20090719
  Serious: Yes (Death, Other)
  Sender: FDA-Public Use
  Company Number: AU-PFIZER INC-2008156398

PATIENT

DRUGS (5)
  1. CELECOXIB [Suspect]
     Indication: ARTHRITIS
  2. VOLTAREN [Suspect]
  3. ACETAMINOPHEN AND CODEINE PHOSPHATE [Suspect]
     Indication: MUSCULOSKELETAL PAIN
     Dosage: UNK
     Route: 048
     Dates: start: 20061026, end: 20061109
  4. CRANBERRY [Suspect]
  5. WARFARIN SODIUM [Suspect]

REACTIONS (2)
  - DEATH [None]
  - HAEMOPTYSIS [None]
